FAERS Safety Report 7081793-4 (Version None)
Quarter: 2010Q4

REPORT INFORMATION
  Report Type: 
  Country: None (occurrence: None)
  Receive Date: 20101103
  Receipt Date: 20101029
  Transmission Date: 20110411
  Serious: Yes (Other)
  Sender: FDA-Public Use
  Company Number: CHPA2010US16948

PATIENT
  Age: 72 Year
  Sex: Female
  Weight: 52.154 kg

DRUGS (2)
  1. PREVACID 24 HR [Suspect]
     Indication: DYSPEPSIA
     Dosage: 15 MG, QD
     Route: 048
     Dates: start: 20100701
  2. LIPITROL [Concomitant]
     Indication: BLOOD CHOLESTEROL INCREASED
     Dosage: UNK

REACTIONS (2)
  - BLOOD ALKALINE PHOSPHATASE INCREASED [None]
  - INTENTIONAL DRUG MISUSE [None]
